FAERS Safety Report 24073315 (Version 1)
Quarter: 2024Q3

REPORT INFORMATION
  Report Type: Spontaneous
  Country: US (occurrence: None)
  Receive Date: 20240710
  Receipt Date: 20240710
  Transmission Date: 20241016
  Serious: Yes (Hospitalization)
  Sender: Public
  Company Number: None

PATIENT
  Age: 15 Year
  Weight: 62.6 kg

DRUGS (4)
  1. DAUNORUBICIN [Suspect]
     Active Substance: DAUNORUBICIN
  2. PREDNISONE [Concomitant]
  3. GLEEVEC [Concomitant]
     Active Substance: IMATINIB MESYLATE
  4. VINCRISTINE SULFATE [Concomitant]

REACTIONS (10)
  - Dehydration [None]
  - Syncope [None]
  - Abdominal pain [None]
  - Pneumoperitoneum [None]
  - Pancytopenia [None]
  - Colitis [None]
  - Intestinal perforation [None]
  - Neutropenic colitis [None]
  - Large intestine perforation [None]
  - Toxicity to various agents [None]

NARRATIVE: CASE EVENT DATE: 20240622
